FAERS Safety Report 12998675 (Version 2)
Quarter: 2017Q1

REPORT INFORMATION
  Report Type: Spontaneous
  Country: JP (occurrence: JP)
  Receive Date: 20161205
  Receipt Date: 20170120
  Transmission Date: 20170428
  Serious: Yes (Other)
  Sender: FDA-Public Use
  Company Number: JP-009507513-1612JPN001500

PATIENT
  Age: 80 Year
  Sex: Male

DRUGS (9)
  1. TIENAM FOR INTRAVENOUS DRIP INFUSION 0.25G [Suspect]
     Active Substance: CILASTATIN SODIUM\IMIPENEM
     Indication: PNEUMONIA ESCHERICHIA
     Dosage: 0.5 G TWICE A DAY, WITH CEFOTIAM HYDROCHLORIDE
  2. TIENAM FOR INTRAVENOUS DRIP INFUSION 0.25G [Suspect]
     Active Substance: CILASTATIN SODIUM\IMIPENEM
     Dosage: 0.5 G TWICE A DAY, WITH MICAFUNGIN SODIUM AND CEFOTIAM HYDROCHLORIDE
  3. SODIUM FERROUS CITRATE [Concomitant]
     Active Substance: SODIUM FERROUS CITRATE
     Dosage: 50 MG, UNK
  4. TIENAM FOR INTRAVENOUS DRIP INFUSION 0.25G [Suspect]
     Active Substance: CILASTATIN SODIUM\IMIPENEM
     Indication: PNEUMONIA KLEBSIELLA
     Dosage: 0.5 G TWICE A DAY, SINCE DAY 6 POST-ADMISSION
  5. CYANOCOBALAMIN. [Concomitant]
     Active Substance: CYANOCOBALAMIN
     Dosage: 1500 MICROGRAM, UNK
  6. AMLODIPINE [Concomitant]
     Active Substance: AMLODIPINE BESYLATE
     Dosage: 2.5 MG, UNK
  7. TIENAM FOR INTRAVENOUS DRIP INFUSION 0.25G [Suspect]
     Active Substance: CILASTATIN SODIUM\IMIPENEM
     Dosage: 0.5 G TWICE A DAY, WITH CEFOTIAM HYDROCHLORIDE
  8. ESOMEPRAZOLE MAGNESIUM. [Concomitant]
     Active Substance: ESOMEPRAZOLE MAGNESIUM
     Dosage: 20 MG, UNK
     Route: 048
  9. CLINDAMYCIN. [Concomitant]
     Active Substance: CLINDAMYCIN
     Dosage: 600 MG TWICE A DAY

REACTIONS (1)
  - Systemic candida [Recovered/Resolved]
